FAERS Safety Report 21470333 (Version 1)
Quarter: 2022Q4

REPORT INFORMATION
  Report Type: Spontaneous
  Country: US (occurrence: US)
  Receive Date: 20221018
  Receipt Date: 20221018
  Transmission Date: 20230113
  Serious: No
  Sender: FDA-Public Use
  Company Number: US-JNJFOC-20221025223

PATIENT
  Age: 25 Year
  Sex: Male

DRUGS (3)
  1. HALDOL DECANOATE [Suspect]
     Active Substance: HALOPERIDOL DECANOATE
     Indication: Mood swings
     Dosage: VARYING DOSES OF 150 MG AND 100 MG
     Route: 030
     Dates: end: 20130225
  2. HALDOL DECANOATE [Suspect]
     Active Substance: HALOPERIDOL DECANOATE
     Indication: Irritability
  3. HALDOL DECANOATE [Suspect]
     Active Substance: HALOPERIDOL DECANOATE
     Indication: Aggression

REACTIONS (7)
  - Hypersomnia [Unknown]
  - Decreased interest [Unknown]
  - Eye movement disorder [Unknown]
  - Retching [Unknown]
  - Extrapyramidal disorder [Unknown]
  - Sedation [Unknown]
  - Off label use [Unknown]

NARRATIVE: CASE EVENT DATE: 20130101
